FAERS Safety Report 5215616-2 (Version None)
Quarter: 2007Q1

REPORT INFORMATION
  Report Type: 
  Country: None (occurrence: None)
  Receive Date: 20070123
  Receipt Date: 20070112
  Transmission Date: 20070707
  Serious: Yes (Other)
  Sender: FDA-Public Use
  Company Number: PHEH2006US15264

PATIENT
  Sex: Female

DRUGS (1)
  1. ZOMETA [Suspect]
     Indication: BREAST CANCER

REACTIONS (6)
  - CRYING [None]
  - DEPRESSED MOOD [None]
  - LOOSE TOOTH [None]
  - MASTICATION DISORDER [None]
  - OSTEONECROSIS [None]
  - PAIN [None]
